FAERS Safety Report 10543813 (Version 1)
Quarter: 2014Q4

REPORT INFORMATION
  Report Type: Spontaneous
  Country: SI (occurrence: SI)
  Receive Date: 20141027
  Receipt Date: 20141027
  Transmission Date: 20150529
  Serious: Yes (Hospitalization)
  Sender: FDA-Public Use
  Company Number: SI-MYLANLABS-2014M1008293

PATIENT
  Age: 2 Year
  Sex: Male

DRUGS (3)
  1. VALPROATE [Suspect]
     Active Substance: VALPROATE SODIUM
     Indication: SEIZURE
     Dosage: 30MG/KG/DAY
     Route: 065
  2. VIGABATRIN [Suspect]
     Active Substance: VIGABATRIN
     Indication: SEIZURE
     Dosage: 40MG/KG/DAY
     Route: 065
  3. LEVETIRACETAM. [Suspect]
     Active Substance: LEVETIRACETAM
     Indication: SEIZURE
     Dosage: 40MG/KG/DAY
     Route: 065

REACTIONS (9)
  - Somnolence [None]
  - Lethargy [None]
  - Dermatitis exfoliative [None]
  - General physical health deterioration [None]
  - Drug reaction with eosinophilia and systemic symptoms [Recovered/Resolved]
  - Encephalopathy [None]
  - Upper respiratory tract infection [None]
  - Coma [None]
  - Thrombocytopenia [None]
